FAERS Safety Report 6196360-4 (Version None)
Quarter: 2009Q2

REPORT INFORMATION
  Report Type: 
  Country: None (occurrence: None)
  Receive Date: 20090520
  Receipt Date: 20090512
  Transmission Date: 20091009
  Serious: Yes (Hospitalization)
  Sender: FDA-Public Use
  Company Number: FR-ASTRAZENECA-2009CG00585

PATIENT
  Age: 24073 Day
  Sex: Female
  Weight: 69 kg

DRUGS (8)
  1. FASLODEX [Suspect]
     Indication: BREAST CANCER METASTATIC
     Route: 030
     Dates: start: 20071214
  2. FASLODEX [Suspect]
     Dosage: DAY FIFTEEN
     Route: 030
  3. FASLODEX [Suspect]
     Route: 030
  4. ENZASTAUR CODE NOT BROKEN [Suspect]
     Indication: BREAST CANCER METASTATIC
     Route: 048
     Dates: start: 20071214
  5. ENZASTAUR CODE NOT BROKEN [Suspect]
     Route: 048
  6. DIAMOX [Concomitant]
     Indication: GLAUCOMA
  7. OXYCONTIN [Concomitant]
     Indication: PAIN
  8. XALATAN [Concomitant]
     Indication: GLAUCOMA

REACTIONS (1)
  - PHLEBITIS [None]
